FAERS Safety Report 10417972 (Version 1)
Quarter: 2014Q3

REPORT INFORMATION
  Report Type: Spontaneous
  Country: US (occurrence: US)
  Receive Date: 20140829
  Receipt Date: 20140829
  Transmission Date: 20150326
  Serious: No
  Sender: FDA-Public Use
  Company Number: US-GLAXOSMITHKLINE-A1034697A

PATIENT
  Sex: Female

DRUGS (1)
  1. MALARONE [Suspect]
     Active Substance: ATOVAQUONE\PROGUANIL HYDROCHLORIDE
     Indication: PRODUCT USED FOR UNKNOWN INDICATION
     Dosage: 1TAB TWICE PER DAY
     Route: 065

REACTIONS (5)
  - Anxiety [Not Recovered/Not Resolved]
  - Chills [Unknown]
  - Fatigue [Not Recovered/Not Resolved]
  - Influenza like illness [Unknown]
  - Respiration abnormal [Not Recovered/Not Resolved]
